FAERS Safety Report 8419896-1 (Version None)
Quarter: 2012Q2

REPORT INFORMATION
  Report Type: 
  Country: None (occurrence: None)
  Receive Date: 20120607
  Receipt Date: 20120603
  Transmission Date: 20120825
  Serious: Yes (Hospitalization, Other)
  Sender: FDA-Public Use
  Company Number: PHHY2012HU045016

PATIENT
  Age: 29 Year
  Sex: Female

DRUGS (1)
  1. METFORMIN HCL [Suspect]
     Indication: INSULIN RESISTANCE
     Route: 048

REACTIONS (8)
  - HAEMATURIA [None]
  - PROTEINURIA [None]
  - ASTHENIA [None]
  - TUBULOINTERSTITIAL NEPHRITIS [None]
  - THROMBOCYTOSIS [None]
  - ARTHRALGIA [None]
  - RENAL IMPAIRMENT [None]
  - ANAEMIA [None]
